FAERS Safety Report 8493811 (Version 5)
Quarter: 2013Q3

REPORT INFORMATION
  Report Type: Spontaneous
  Country: US (occurrence: US)
  Receive Date: 20120404
  Receipt Date: 20130816
  Transmission Date: 20140515
  Serious: Yes (Hospitalization, Other)
  Sender: FDA-Public Use
  Company Number: US-AMGEN-USASP2012014144

PATIENT
  Age: 34 Year
  Sex: Female

DRUGS (6)
  1. ENBREL [Suspect]
     Indication: PSORIASIS
     Dosage: 50 MG, QWK
     Route: 065
     Dates: start: 20070201
  2. ENBREL [Suspect]
     Indication: PSORIATIC ARTHROPATHY
  3. PRENATAL VITAMINS                  /02014401/ [Concomitant]
     Dosage: UNK UNK, QD
     Route: 048
  4. VITAMIN D3 [Concomitant]
     Dosage: 2000 UNIT, QD
     Route: 048
  5. REMICADE [Concomitant]
     Dosage: UNK
     Route: 042
     Dates: start: 201111, end: 20120105
  6. TETANUS TOXOID [Concomitant]
     Dosage: UNK

REACTIONS (3)
  - Prolonged labour [Recovered/Resolved]
  - Caesarean section [Unknown]
  - Lower respiratory tract infection [Unknown]
